FAERS Safety Report 6752745-6 (Version None)
Quarter: 2010Q2

REPORT INFORMATION
  Report Type: 
  Country: None (occurrence: None)
  Receive Date: 20100528
  Receipt Date: 20100520
  Transmission Date: 20101027
  Serious: Yes (Hospitalization)
  Sender: FDA-Public Use
  Company Number: 100234

PATIENT
  Age: 59 Year
  Sex: Male

DRUGS (1)
  1. CISPLATIN [Suspect]
     Indication: HEAD AND NECK CANCER
     Dates: start: 20100202

REACTIONS (3)
  - MUCOSAL INFLAMMATION [None]
  - NAUSEA [None]
  - VOMITING [None]
